FAERS Safety Report 21079123 (Version 1)
Quarter: 2022Q3

REPORT INFORMATION
  Report Type: Spontaneous
  Country: ES (occurrence: ES)
  Receive Date: 20220714
  Receipt Date: 20220714
  Transmission Date: 20221027
  Serious: Yes (Death)
  Sender: FDA-Public Use
  Company Number: ES-SUN PHARMACEUTICAL INDUSTRIES LTD-2022R1-343829

PATIENT
  Age: 39 Year
  Sex: Female

DRUGS (2)
  1. DEXAMETHASONE [Suspect]
     Active Substance: DEXAMETHASONE
     Indication: Cerebral toxoplasmosis
     Route: 065
  2. PYRIMETHAMINE\SULFADIAZINE [Suspect]
     Active Substance: PYRIMETHAMINE\SULFADIAZINE
     Indication: Cerebral toxoplasmosis
     Route: 065

REACTIONS (1)
  - Strongyloidiasis [Fatal]
